FAERS Safety Report 9636304 (Version 1)
Quarter: 2013Q4

REPORT INFORMATION
  Report Type: Spontaneous
  Country: US (occurrence: US)
  Receive Date: 20131021
  Receipt Date: 20131021
  Transmission Date: 20140711
  Serious: No
  Sender: FDA-Public Use
  Company Number: US-PFIZER INC-2013298863

PATIENT
  Age: 70 Year
  Sex: Female
  Weight: 82.54 kg

DRUGS (2)
  1. XELJANZ [Suspect]
     Indication: RHEUMATOID ARTHRITIS
     Dosage: 5 MG, 2X/DAY
     Route: 048
     Dates: start: 201309, end: 20131015
  2. CLONIDINE [Suspect]
     Indication: HYPERTENSION
     Dosage: 0.2 MG, 5X/DAY

REACTIONS (3)
  - Intentional drug misuse [Unknown]
  - Chest pain [Not Recovered/Not Resolved]
  - Aphonia [Not Recovered/Not Resolved]
